FAERS Safety Report 11200756 (Version 1)
Quarter: 2015Q2

REPORT INFORMATION
  Report Type: Report from Study
  Country: MX (occurrence: MX)
  Receive Date: 20150618
  Receipt Date: 20150618
  Transmission Date: 20150821
  Serious: Yes (Hospitalization)
  Sender: FDA-Public Use
  Company Number: MX-BIOMARINAP-MX-2015-106621

PATIENT
  Age: 3 Year
  Sex: Male

DRUGS (1)
  1. ALDURAZYME [Suspect]
     Active Substance: LARONIDASE
     Indication: MUCOPOLYSACCHARIDOSIS I
     Dosage: UNK UNK, QW
     Route: 042
     Dates: end: 201412

REACTIONS (6)
  - Respiratory disorder [Unknown]
  - Productive cough [Unknown]
  - Dyspnoea [Unknown]
  - Feeding disorder [Unknown]
  - Asthenia [Unknown]
  - Weight decreased [Unknown]
